FAERS Safety Report 4599519-2 (Version None)
Quarter: 2005Q1

REPORT INFORMATION
  Report Type: 
  Country: None (occurrence: None)
  Receive Date: 20050303
  Receipt Date: 20050210
  Transmission Date: 20050727
  Serious: Yes (Other)
  Sender: FDA-Public Use
  Company Number: USA050290553

PATIENT
  Age: 45 Year
  Sex: Female
  Weight: 45 kg

DRUGS (3)
  1. CYMBALTA [Suspect]
     Indication: DEPRESSION
  2. PROZAC [Suspect]
     Indication: DEPRESSION
  3. AMBIEN [Concomitant]

REACTIONS (2)
  - SUICIDAL IDEATION [None]
  - SUICIDE ATTEMPT [None]
